FAERS Safety Report 10866008 (Version 4)
Quarter: 2016Q2

REPORT INFORMATION
  Report Type: Spontaneous
  Country: GB (occurrence: GB)
  Receive Date: 20150225
  Receipt Date: 20160428
  Transmission Date: 20160815
  Serious: Yes (Death, Hospitalization)
  Sender: FDA-Public Use
  Company Number: PHHY2015GB018959

PATIENT
  Age: 58 Year
  Sex: Male
  Weight: 100 kg

DRUGS (8)
  1. DOXAZOSIN MESYLATE. [Suspect]
     Active Substance: DOXAZOSIN MESYLATE
     Indication: HYPERTENSION
     Dosage: 4 MG, BID
     Route: 065
     Dates: start: 2002
  2. BECONASE AQ [Concomitant]
     Active Substance: BECLOMETHASONE DIPROPIONATE MONOHYDRATE
     Indication: INFLUENZA LIKE ILLNESS
  3. AMLODIPINE BESYLATE. [Suspect]
     Active Substance: AMLODIPINE BESYLATE
     Indication: HYPERTENSION
     Dosage: 5 MG, QD
     Route: 065
     Dates: start: 20140922
  4. DOXAZOSIN MESYLATE. [Suspect]
     Active Substance: DOXAZOSIN MESYLATE
     Dosage: 8 MG, BID
     Route: 065
     Dates: start: 2014
  5. LISINOPRIL. [Suspect]
     Active Substance: LISINOPRIL
     Dosage: 20 MG, 1X/DAY
     Route: 048
     Dates: start: 2002, end: 20141126
  6. BECONASE AQ [Concomitant]
     Active Substance: BECLOMETHASONE DIPROPIONATE MONOHYDRATE
     Indication: CATARRH
  7. LISINOPRIL. [Suspect]
     Active Substance: LISINOPRIL
     Indication: HYPERTENSION
     Dosage: 20 MG, QD
     Route: 048
     Dates: start: 2002, end: 20141126
  8. BECONASE AQ [Concomitant]
     Active Substance: BECLOMETHASONE DIPROPIONATE MONOHYDRATE
     Indication: DYSPNOEA
     Route: 065
     Dates: start: 201405

REACTIONS (21)
  - Myocardial ischaemia [Fatal]
  - Muscular weakness [Unknown]
  - Muscle atrophy [Unknown]
  - Fatigue [Unknown]
  - Hyponatraemia [Unknown]
  - Lower respiratory tract infection [Unknown]
  - Cardiac failure acute [Unknown]
  - Anaemia [Unknown]
  - Multifocal motor neuropathy [Unknown]
  - Muscle spasms [Unknown]
  - Cardiac failure congestive [Fatal]
  - Hypertensive heart disease [Fatal]
  - Dysarthria [Unknown]
  - Balance disorder [Unknown]
  - Blood urine present [Unknown]
  - Weight decreased [Unknown]
  - Asthenia [Unknown]
  - Coronary artery disease [Fatal]
  - Confusional state [Unknown]
  - Dyspnoea [Unknown]
  - Hypokalaemia [Unknown]

NARRATIVE: CASE EVENT DATE: 20141124
